FAERS Safety Report 10760594 (Version 3)
Quarter: 2016Q1

REPORT INFORMATION
  Report Type: Spontaneous
  Country: FR (occurrence: FR)
  Receive Date: 20150202
  Receipt Date: 20160310
  Transmission Date: 20160525
  Serious: Yes (Death, Hospitalization)
  Sender: FDA-Public Use
  Company Number: FR-H14001-15-00141

PATIENT
  Age: 65 Year
  Sex: Female
  Weight: 80 kg

DRUGS (14)
  1. ZOCOR [Concomitant]
     Active Substance: SIMVASTATIN
     Indication: PRODUCT USED FOR UNKNOWN INDICATION
     Route: 065
  2. VANCOMYCIN [Concomitant]
     Active Substance: VANCOMYCIN
     Indication: FEBRILE BONE MARROW APLASIA
     Route: 041
     Dates: start: 20100515
  3. TIENAM [Concomitant]
     Active Substance: CILASTATIN SODIUM\IMIPENEM
     Indication: ANTIBIOTIC THERAPY
     Route: 065
     Dates: start: 20100520
  4. NOREPINEPHRINE [Concomitant]
     Active Substance: NOREPINEPHRINE\NOREPINEPHRINE BITARTRATE
     Indication: ANTIBIOTIC THERAPY
     Route: 065
  5. CERUBIDIN [Suspect]
     Active Substance: DAUNORUBICIN
     Indication: ACUTE MYELOID LEUKAEMIA
     Route: 041
     Dates: start: 20100507, end: 20100509
  6. ZOVIRAX [Concomitant]
     Active Substance: ACYCLOVIR
     Indication: PRODUCT USED FOR UNKNOWN INDICATION
     Route: 041
     Dates: start: 20100512
  7. CASPOFUNGIN [Concomitant]
     Active Substance: CASPOFUNGIN
     Indication: ANTIBIOTIC THERAPY
     Route: 065
  8. GEMTUZUMAB OZOGAMICIN [Suspect]
     Active Substance: GEMTUZUMAB OZOGAMICIN
     Indication: ACUTE MYELOID LEUKAEMIA
     Route: 041
     Dates: start: 20100507, end: 20100513
  9. HEPARIN [Concomitant]
     Active Substance: HEPARIN SODIUM
     Indication: DRUG TOXICITY PROPHYLAXIS
     Route: 065
     Dates: start: 201005
  10. CYTARABINE. [Suspect]
     Active Substance: CYTARABINE
     Indication: ACUTE MYELOID LEUKAEMIA
     Route: 041
     Dates: start: 20100507, end: 20100513
  11. CHONDROSULF [Concomitant]
     Active Substance: CHONDROITIN SULFATE (CHICKEN)
     Indication: PRODUCT USED FOR UNKNOWN INDICATION
     Route: 065
  12. DELURSAN [Concomitant]
     Active Substance: URSODIOL
     Indication: DRUG TOXICITY PROPHYLAXIS
     Route: 065
     Dates: start: 201005
  13. TAZOCILLINE [Concomitant]
     Active Substance: PIPERACILLIN SODIUM\TAZOBACTAM SODIUM
     Indication: FEBRILE BONE MARROW APLASIA
     Route: 041
     Dates: start: 20100512, end: 20100520
  14. NOXAFIL [Concomitant]
     Active Substance: POSACONAZOLE
     Indication: ANTIFUNGAL PROPHYLAXIS
     Route: 048
     Dates: start: 20100517, end: 20100520

REACTIONS (6)
  - Multiple organ dysfunction syndrome [Fatal]
  - Fall [Fatal]
  - Sepsis [Fatal]
  - Shock haemorrhagic [Fatal]
  - Febrile bone marrow aplasia [Fatal]
  - Haemorrhage [Fatal]

NARRATIVE: CASE EVENT DATE: 201005
